FAERS Safety Report 4355843-X (Version None)
Quarter: 2004Q2

REPORT INFORMATION
  Report Type: 
  Country: None (occurrence: None)
  Receive Date: 20040505
  Receipt Date: 20040424
  Transmission Date: 20050107
  Serious: Yes (Other)
  Sender: FDA-Public Use
  Company Number: 2004011279

PATIENT
  Age: 82 Year
  Sex: Female
  Weight: 69.4003 kg

DRUGS (9)
  1. NEURONTIN [Suspect]
     Indication: ARTHRALGIA
     Dosage: ORAL
     Route: 048
     Dates: start: 20030701, end: 20040101
  2. MAGNESIUM OXIDE (MAGNESIUM OXIDE) [Concomitant]
  3. DIGOXIN [Concomitant]
  4. ATORVASTATIN (ATORVASTATIN) [Concomitant]
  5. GEMFIBROZIL [Concomitant]
  6. RAMIPRIL [Concomitant]
  7. VITAMINS (VITAMINS) [Concomitant]
  8. ACETYLSALICYLIC ACID SRT [Concomitant]
  9. INSULIN [Concomitant]

REACTIONS (4)
  - ABASIA [None]
  - AMNESIA [None]
  - LOSS OF CONSCIOUSNESS [None]
  - SPEECH DISORDER [None]
